FAERS Safety Report 4911056-1 (Version None)
Quarter: 2006Q1

REPORT INFORMATION
  Report Type: 
  Country: None (occurrence: None)
  Receive Date: 20060214
  Receipt Date: 20050203
  Transmission Date: 20060701
  Serious: Yes (Hospitalization, Other)
  Sender: FDA-Public Use
  Company Number: US-MERCK-0502USA00528

PATIENT
  Age: 67 Year
  Sex: Male
  Weight: 86 kg

DRUGS (5)
  1. VIOXX [Suspect]
     Route: 048
     Dates: start: 20010801, end: 20030601
  2. VIOXX [Suspect]
     Route: 048
     Dates: start: 20020301, end: 20041001
  3. VIOXX [Suspect]
     Route: 048
     Dates: start: 20010801, end: 20030601
  4. VIOXX [Suspect]
     Route: 048
     Dates: start: 20020301, end: 20041001
  5. ASPIRIN [Concomitant]
     Route: 065

REACTIONS (17)
  - ABDOMINAL PAIN [None]
  - ACUTE SINUSITIS [None]
  - CAROTID ARTERY ATHEROMA [None]
  - CEREBRAL ISCHAEMIA [None]
  - CEREBROVASCULAR ACCIDENT [None]
  - CHOLELITHIASIS [None]
  - CORONARY ARTERY DISEASE [None]
  - CORONARY ARTERY STENOSIS [None]
  - DIASTOLIC DYSFUNCTION [None]
  - HYPERTENSION [None]
  - HYPOAESTHESIA [None]
  - LIMB INJURY [None]
  - MICROANGIOPATHY [None]
  - MITRAL VALVE DISEASE [None]
  - MYOCARDIAL INFARCTION [None]
  - SHOULDER PAIN [None]
  - VENTRICULAR HYPERTROPHY [None]
